FAERS Safety Report 8292458-5 (Version None)
Quarter: 2012Q2

REPORT INFORMATION
  Report Type: 
  Country: None (occurrence: None)
  Receive Date: 20120417
  Receipt Date: 20110524
  Transmission Date: 20120825
  Serious: No
  Sender: FDA-Public Use
  Company Number: US-ASTRAZENECA-2011SE32091

PATIENT
  Sex: Male

DRUGS (3)
  1. LIPITOR [Concomitant]
  2. NEXIUM [Suspect]
     Route: 048
  3. PRILOSEC [Concomitant]

REACTIONS (1)
  - BLOOD TRIGLYCERIDES INCREASED [None]
